FAERS Safety Report 20119989 (Version 4)
Quarter: 2022Q3

REPORT INFORMATION
  Report Type: Spontaneous
  Country: US (occurrence: None)
  Receive Date: 20211126
  Receipt Date: 20220720
  Transmission Date: 20221027
  Serious: Yes (Other)
  Sender: FDA-Public Use
  Company Number: US-Merck Healthcare KGaA-9281546

PATIENT
  Sex: Male

DRUGS (3)
  1. SEROSTIM [Suspect]
     Active Substance: SOMATROPIN
     Indication: HIV infection
     Route: 058
     Dates: start: 20161018
  2. SEROSTIM [Suspect]
     Active Substance: SOMATROPIN
     Indication: Cachexia
     Route: 058
     Dates: start: 20171017
  3. SEROSTIM [Suspect]
     Active Substance: SOMATROPIN
     Indication: HIV infection

REACTIONS (5)
  - Spinal cord injury [Unknown]
  - Weight decreased [Unknown]
  - Hypophagia [Unknown]
  - Product availability issue [Unknown]
  - Manufacturing product shipping issue [Unknown]
